FAERS Safety Report 6540292-6 (Version None)
Quarter: 2010Q1

REPORT INFORMATION
  Report Type: 
  Country: None (occurrence: None)
  Receive Date: 20100115
  Receipt Date: 20090223
  Transmission Date: 20100710
  Serious: No
  Sender: FDA-Public Use
  Company Number: US-ABBOTT-09P-163-0559033-00

PATIENT
  Sex: Male
  Weight: 98.064 kg

DRUGS (6)
  1. ADVICOR [Suspect]
     Indication: BLOOD TRIGLYCERIDES INCREASED
     Dosage: 1000/20MG
     Dates: start: 20060101
  2. ADVICOR [Suspect]
     Indication: HIGH DENSITY LIPOPROTEIN DECREASED
  3. LEVOTHYROXINE SODIUM [Concomitant]
     Indication: THYROID DISORDER
  4. PROBENECID [Concomitant]
     Indication: GOUT
  5. CELEBREX [Concomitant]
     Indication: PAIN
  6. CELEBREX [Concomitant]
     Indication: GOUT

REACTIONS (1)
  - FLUSHING [None]
